FAERS Safety Report 21481078 (Version 16)
Quarter: 2025Q2

REPORT INFORMATION
  Report Type: Report from Study
  Country: US (occurrence: US)
  Receive Date: 20221019
  Receipt Date: 20250623
  Transmission Date: 20250717
  Serious: Yes (Other)
  Sender: TAKEDA
  Company Number: US-TAKEDA-2021TUS049058

PATIENT
  Sex: Male
  Weight: 92 kg

DRUGS (46)
  1. HUMAN IMMUNOGLOBULIN G [Suspect]
     Active Substance: HUMAN IMMUNOGLOBULIN G
     Indication: Immunodeficiency
     Dosage: 20 GRAM, Q2WEEKS
  2. HUMAN IMMUNOGLOBULIN G [Suspect]
     Active Substance: HUMAN IMMUNOGLOBULIN G
     Indication: Immunodeficiency common variable
     Dosage: 25 GRAM, Q2WEEKS
  3. HUMAN IMMUNOGLOBULIN G [Suspect]
     Active Substance: HUMAN IMMUNOGLOBULIN G
  4. HUMAN IMMUNOGLOBULIN G [Suspect]
     Active Substance: HUMAN IMMUNOGLOBULIN G
     Dosage: 30 GRAM, Q2WEEKS
  5. DIPHENHYDRAMINE [Concomitant]
     Active Substance: DIPHENHYDRAMINE
  6. REPATHA [Concomitant]
     Active Substance: EVOLOCUMAB
  7. FENOFIBRATE [Concomitant]
     Active Substance: FENOFIBRATE
  8. SYMBICORT [Concomitant]
     Active Substance: BUDESONIDE\FORMOTEROL FUMARATE DIHYDRATE
  9. ASPIRIN [Concomitant]
     Active Substance: ASPIRIN
  10. RITUXAN [Concomitant]
     Active Substance: RITUXIMAB
  11. EPINEPHRINE [Concomitant]
     Active Substance: EPINEPHRINE
  12. EZETIMIBE [Concomitant]
     Active Substance: EZETIMIBE
  13. COENZYME Q10 [Concomitant]
     Active Substance: DIETARY SUPPLEMENT\UBIDECARENONE
  14. LEVOFLOXACIN [Concomitant]
     Active Substance: LEVOFLOXACIN
  15. TRELEGY ELLIPTA [Concomitant]
     Active Substance: FLUTICASONE FUROATE\UMECLIDINIUM BROMIDE\VILANTEROL TRIFENATATE
  16. IRBESARTAN [Concomitant]
     Active Substance: IRBESARTAN
  17. Fish oil plus vitamin d [Concomitant]
  18. ACETAMINOPHEN [Concomitant]
     Active Substance: ACETAMINOPHEN
  19. ERGOCALCIFEROL [Concomitant]
     Active Substance: ERGOCALCIFEROL
  20. ALBUTEROL\IPRATROPIUM [Concomitant]
     Active Substance: ALBUTEROL\IPRATROPIUM
  21. VITAMIN E [Concomitant]
     Active Substance: .ALPHA.-TOCOPHEROL
  22. MONTELUKAST SODIUM [Concomitant]
     Active Substance: MONTELUKAST SODIUM
  23. AUGMENTIN [Concomitant]
     Active Substance: AMOXICILLIN\CLAVULANATE POTASSIUM
  24. ROSUVASTATIN CALCIUM [Concomitant]
     Active Substance: ROSUVASTATIN CALCIUM
  25. LIDOCAINE [Concomitant]
     Active Substance: LIDOCAINE
  26. FINASTERIDE [Concomitant]
     Active Substance: FINASTERIDE
  27. Lmx [Concomitant]
  28. TRELEGY ELLIPTA [Concomitant]
     Active Substance: FLUTICASONE FUROATE\UMECLIDINIUM BROMIDE\VILANTEROL TRIFENATATE
  29. ROSUVASTATIN [Concomitant]
     Active Substance: ROSUVASTATIN
  30. MONTELUKAST [Concomitant]
     Active Substance: MONTELUKAST
  31. DIPHENHYDRAMINE HYDROCHLORIDE [Concomitant]
     Active Substance: DIPHENHYDRAMINE HYDROCHLORIDE
  32. Coq [Concomitant]
  33. VITAMIN D3 [Concomitant]
     Active Substance: CHOLECALCIFEROL
  34. VITAMIN D3 [Concomitant]
     Active Substance: CHOLECALCIFEROL
  35. ALBUTEROL SULFATE [Concomitant]
     Active Substance: ALBUTEROL SULFATE
  36. CLOPIDOGREL [Concomitant]
     Active Substance: CLOPIDOGREL BISULFATE
  37. FLUTICASONE PROPIONATE HFA [Concomitant]
     Active Substance: FLUTICASONE PROPIONATE
  38. Omega [Concomitant]
  39. ATROVENT HFA [Concomitant]
     Active Substance: IPRATROPIUM BROMIDE
  40. AMOXICILLIN\CLAVULANATE POTASSIUM [Concomitant]
     Active Substance: AMOXICILLIN\CLAVULANATE POTASSIUM
  41. RUXIENCE [Concomitant]
     Active Substance: RITUXIMAB-PVVR
  42. CRESTOR [Concomitant]
     Active Substance: ROSUVASTATIN CALCIUM
  43. FORMOTEROL FUMARATE [Concomitant]
     Active Substance: FORMOTEROL FUMARATE
  44. OXYCODONE HYDROCHLORIDE [Concomitant]
     Active Substance: OXYCODONE HYDROCHLORIDE
  45. PROSCAR [Concomitant]
     Active Substance: FINASTERIDE
  46. ASPIRIN [Concomitant]
     Active Substance: ASPIRIN

REACTIONS (35)
  - Cataract [Unknown]
  - Pneumonia [Not Recovered/Not Resolved]
  - Chronic obstructive pulmonary disease [Not Recovered/Not Resolved]
  - Body height decreased [Unknown]
  - Ear congestion [Unknown]
  - Ear disorder [Unknown]
  - Injection site discharge [Unknown]
  - Blister [Unknown]
  - Ear infection [Unknown]
  - Skin infection [Unknown]
  - Nasopharyngitis [Unknown]
  - Sinus disorder [Unknown]
  - Weight increased [Unknown]
  - Weight decreased [Unknown]
  - Injection site discomfort [Unknown]
  - Weight fluctuation [Unknown]
  - Bronchitis [Not Recovered/Not Resolved]
  - Needle issue [Unknown]
  - Multiple allergies [Unknown]
  - Sneezing [Unknown]
  - Mass [Recovering/Resolving]
  - Therapeutic response delayed [Unknown]
  - Sinusitis [Unknown]
  - Asthma [Not Recovered/Not Resolved]
  - Injection site haemorrhage [Unknown]
  - Abdominal discomfort [Unknown]
  - Oropharyngeal pain [Unknown]
  - Infusion site bruising [Unknown]
  - Cough [Recovered/Resolved]
  - Injection site pain [Unknown]
  - Infusion site swelling [Recovering/Resolving]
  - Hypersensitivity [Unknown]
  - Infusion site pain [Unknown]
  - Diarrhoea [Unknown]
  - Headache [Recovered/Resolved]
